FAERS Safety Report 23418477 (Version 2)
Quarter: 2024Q1

REPORT INFORMATION
  Report Type: Report from Study
  Country: HN (occurrence: HN)
  Receive Date: 20240118
  Receipt Date: 20240124
  Transmission Date: 20240410
  Serious: Yes (Other)
  Sender: FDA-Public Use
  Company Number: HN-002147023-NVSC2024HN008835

PATIENT
  Age: 70 Year
  Sex: Female

DRUGS (2)
  1. EXFORGE HCT [Suspect]
     Active Substance: AMLODIPINE BESYLATE\HYDROCHLOROTHIAZIDE\VALSARTAN
     Indication: Hypertension
     Dosage: 1 DOSAGE FORM (10/320/25 MG), QD
     Route: 048
     Dates: start: 202312, end: 20240106
  2. HYDROCHLOROTHIAZIDE\VALSARTAN [Suspect]
     Active Substance: HYDROCHLOROTHIAZIDE\VALSARTAN
     Indication: Hypertension
     Dosage: 1 DOSAGE FORM (320/12.5 MG)
     Route: 065
     Dates: end: 202311

REACTIONS (3)
  - Somnolence [Recovered/Resolved with Sequelae]
  - Adverse event [Recovered/Resolved with Sequelae]
  - Erythema [Unknown]

NARRATIVE: CASE EVENT DATE: 20240103
